FAERS Safety Report 23004382 (Version 5)
Quarter: 2023Q4

REPORT INFORMATION
  Report Type: Report from Study
  Country: US (occurrence: US)
  Receive Date: 20230928
  Receipt Date: 20231229
  Transmission Date: 20240110
  Serious: Yes (Death, Life-Threatening, Hospitalization, Disabling, Other)
  Sender: FDA-Public Use
  Company Number: US-GILEAD-2023-0645204

PATIENT
  Age: 75 Year
  Sex: Male
  Weight: 114 kg

DRUGS (27)
  1. BREXUCABTAGENE AUTOLEUCEL [Suspect]
     Active Substance: BREXUCABTAGENE AUTOLEUCEL
     Indication: Haematological malignancy
     Dosage: UNK
     Route: 065
     Dates: start: 20230915, end: 20230915
  2. ACYCLOVIR [Concomitant]
     Active Substance: ACYCLOVIR
  3. SODIUM CHLORIDE [Concomitant]
     Active Substance: SODIUM CHLORIDE
  4. HALOPERIDOL LACTATE [Concomitant]
     Active Substance: HALOPERIDOL LACTATE
  5. IPRATROPIUM [Concomitant]
     Active Substance: IPRATROPIUM
  6. MIDAZOLAM [Concomitant]
     Active Substance: MIDAZOLAM
  7. NOREPINEPHRINE [Concomitant]
     Active Substance: NOREPINEPHRINE
  8. VANCOMYCIN [Concomitant]
     Active Substance: VANCOMYCIN
  9. FUROSEMIDE [Concomitant]
     Active Substance: FUROSEMIDE
  10. MEROPENEM [Concomitant]
     Active Substance: MEROPENEM
  11. DEXAMETHASONE [Concomitant]
     Active Substance: DEXAMETHASONE
  12. ANAKINRA [Concomitant]
     Active Substance: ANAKINRA
  13. POSACONAZOLE [Concomitant]
     Active Substance: POSACONAZOLE
  14. CHLOROTHIAZIDE [Concomitant]
     Active Substance: CHLOROTHIAZIDE
  15. ALBUMIN HUMAN [Concomitant]
     Active Substance: ALBUMIN HUMAN
  16. INSULIN ASPART [Concomitant]
     Active Substance: INSULIN ASPART
  17. LACTATED RINGERS SOLUTION [Concomitant]
     Active Substance: CALCIUM CHLORIDE\POTASSIUM CHLORIDE\SODIUM CHLORIDE\SODIUM LACTATE
  18. LEVETIRACETAM [Concomitant]
     Active Substance: LEVETIRACETAM
  19. TOCILIZUMAB [Concomitant]
     Active Substance: TOCILIZUMAB
  20. AMITRIPTYLINE;KETAMINE [Concomitant]
  21. OXYBUTYNIN [Concomitant]
     Active Substance: OXYBUTYNIN
  22. MELATONIN [Concomitant]
     Active Substance: MELATONIN
  23. PHENYLEPHRINE [Concomitant]
     Active Substance: PHENYLEPHRINE HYDROCHLORIDE
  24. CASPOFUNGIN [Concomitant]
     Active Substance: CASPOFUNGIN
  25. ACETAMINOPHEN [Concomitant]
     Active Substance: ACETAMINOPHEN
  26. IOHEXOL [Concomitant]
     Active Substance: IOHEXOL
  27. LIDOCAINE [Concomitant]
     Active Substance: LIDOCAINE

REACTIONS (16)
  - Acute respiratory failure [Fatal]
  - Cholecystitis [Recovering/Resolving]
  - Colitis [Recovering/Resolving]
  - Enterococcal infection [Recovered/Resolved]
  - Septic shock [Recovered/Resolved]
  - Acute kidney injury [Not Recovered/Not Resolved]
  - Immune effector cell-associated neurotoxicity syndrome [Recovered/Resolved]
  - Haemophagocytic lymphohistiocytosis [Recovered/Resolved]
  - Hypotension [Recovered/Resolved]
  - Cytopenia [Not Recovered/Not Resolved]
  - Enterococcal infection [Not Recovered/Not Resolved]
  - Bronchopulmonary aspergillosis [Not Recovered/Not Resolved]
  - Pulmonary embolism [Not Recovered/Not Resolved]
  - Neurotoxicity [Unknown]
  - Cytokine release syndrome [Unknown]
  - Encephalopathy [Not Recovered/Not Resolved]

NARRATIVE: CASE EVENT DATE: 20230920
